FAERS Safety Report 23501797 (Version 1)
Quarter: 2024Q1

REPORT INFORMATION
  Report Type: Spontaneous
  Country: US (occurrence: US)
  Receive Date: 20240208
  Receipt Date: 20240208
  Transmission Date: 20240409
  Serious: No
  Sender: FDA-Public Use
  Company Number: US-ANIPHARMA-2023-US-040895

PATIENT
  Age: 62 Year
  Sex: Female
  Weight: 86.18 kg

DRUGS (1)
  1. CORTICOTROPIN [Suspect]
     Active Substance: CORTICOTROPIN
     Indication: Rheumatoid arthritis
     Dosage: INJECT 80 UNITS (1 ML) SUBCUTANEOUSLY Q3D AS DIRECTED
     Route: 058
     Dates: start: 202309

REACTIONS (4)
  - Ear infection [Unknown]
  - Contraindicated product administered [Not Recovered/Not Resolved]
  - Illness [Unknown]
  - Product dose omission issue [Unknown]
